FAERS Safety Report 7356315-0 (Version None)
Quarter: 2011Q1

REPORT INFORMATION
  Report Type: 
  Country: None (occurrence: None)
  Receive Date: 20110316
  Receipt Date: 20110304
  Transmission Date: 20110831
  Serious: Yes (Hospitalization)
  Sender: FDA-Public Use
  Company Number: DE-ROCHE-642466

PATIENT
  Sex: Female
  Weight: 56 kg

DRUGS (11)
  1. EPIRUBICIN [Suspect]
     Indication: BREAST CANCER
     Dosage: ROUTE: VIA PORT FREQUENCY: Q21 DOSE: 140 LAST DOSE:02 JUNE 2009
     Route: 065
     Dates: start: 20090330
  2. NEULASTA [Concomitant]
     Dates: start: 20090624
  3. CIPROBAY [Concomitant]
     Dates: start: 20090923, end: 20090925
  4. DOCETAXEL [Suspect]
     Indication: BREAST CANCER
     Dosage: DOSE: 158 MG, FREQUENCY: Q21 LAST DOSE: 15 SEP 2009
     Route: 042
     Dates: start: 20090623
  5. CYCLOPHOSPHAMIDE [Suspect]
     Indication: BREAST CANCER
     Dosage: ROUTE: VIA PORT DOSE: 950 LAST DOSE: 02 JUNE 2009
     Route: 065
     Dates: start: 20090330
  6. PANTOZOL [Concomitant]
     Dosage: DRUG NAME REPORTED AS PANTOZOL 20-1
  7. BROMHEXIN [Concomitant]
     Dosage: TOTAL DAILY DOSE: 3X20 DROPS.
     Dates: start: 20090922, end: 20091124
  8. BISOPROLOL [Concomitant]
     Dates: start: 20030201
  9. BEVACIZUMAB [Suspect]
     Indication: BREAST CANCER
     Dosage: FREQUENCY: Q21 DOSE: 840MG ROUTE AND FORM AS PER PROTOCOL.LAST DOSE PRIOR TO SAE:15 SEP 2009
     Route: 042
     Dates: start: 20090330
  10. NEULASTA [Concomitant]
     Dates: start: 20090916, end: 20090916
  11. TAZOBAC [Concomitant]
     Dates: start: 20090925, end: 20091003

REACTIONS (7)
  - PNEUMONITIS [None]
  - MUCOSAL INFLAMMATION [None]
  - FATIGUE [None]
  - PALMAR-PLANTAR ERYTHRODYSAESTHESIA SYNDROME [None]
  - HYPERTENSION [None]
  - ANAEMIA [None]
  - PYREXIA [None]
